FAERS Safety Report 7598465-X (Version None)
Quarter: 2011Q3

REPORT INFORMATION
  Report Type: 
  Country: None (occurrence: None)
  Receive Date: 20110708
  Receipt Date: 20110705
  Transmission Date: 20111222
  Serious: Yes (Death)
  Sender: FDA-Public Use
  Company Number: US-ELI_LILLY_AND_COMPANY-US201106001240

PATIENT
  Sex: Male
  Weight: 80.272 kg

DRUGS (11)
  1. ALIMTA [Suspect]
     Dosage: 970 MG, EVERY 21 DAYS
     Route: 042
     Dates: start: 20100602
  2. VITAMIN TAB [Concomitant]
     Dosage: UNK, UNKNOWN
     Route: 065
  3. PRILOSEC [Concomitant]
     Dosage: UNK, UNKNOWN
     Route: 065
  4. FOLIC ACID [Concomitant]
     Dosage: UNK, UNKNOWN
     Route: 065
  5. LEXAPRO [Concomitant]
     Dosage: UNK, UNKNOWN
     Route: 065
  6. ASPIRIN [Concomitant]
     Dosage: UNK, UNKNOWN
     Route: 065
  7. ALIMTA [Suspect]
     Indication: LUNG NEOPLASM MALIGNANT
     Dosage: 970 MG, EVERY 21 DAYS
     Route: 042
     Dates: start: 20100514
  8. BENAZEPRIL HYDROCHLORIDE [Concomitant]
     Dosage: UNK, UNKNOWN
     Route: 065
  9. ALIMTA [Suspect]
     Dosage: 970 MG, EVERY 21 DAYS
     Dates: start: 20100712
  10. ALIMTA [Suspect]
     Dosage: 970 MG, EVERY 21 DAYS
     Route: 065
     Dates: start: 20100802
  11. ATENOLOL [Concomitant]
     Dosage: UNK, UNKNOWN
     Route: 065

REACTIONS (2)
  - NEOPLASM PROGRESSION [None]
  - DRUG DOSE OMISSION [None]
